FAERS Safety Report 15314969 (Version 1)
Quarter: 2018Q3

REPORT INFORMATION
  Report Type: Spontaneous
  Country: CH (occurrence: CH)
  Receive Date: 20180824
  Receipt Date: 20180824
  Transmission Date: 20181010
  Serious: Yes (Life-Threatening, Hospitalization)
  Sender: FDA-Public Use
  Company Number: CH-TEVA-2018-CH-946260

PATIENT
  Age: 35 Year
  Sex: Female
  Weight: 60 kg

DRUGS (15)
  1. MOVICOL [Concomitant]
     Active Substance: POLYETHYLENE GLYCOL 3350\POTASSIUM CHLORIDE\SODIUM BICARBONATE\SODIUM CHLORIDE
     Dosage: 1?0?0
     Route: 048
  2. IMIGRAN [Concomitant]
     Active Substance: SUMATRIPTAN SUCCINATE
     Dosage: AS NECESSARY
     Route: 058
  3. ASPIRIN CARDIO [Concomitant]
     Active Substance: ASPIRIN
     Dosage: 1?0?0?0
     Route: 048
  4. TOPAMAX [Concomitant]
     Active Substance: TOPIRAMATE
     Dosage: 1?0?1
     Route: 048
     Dates: start: 201511
  5. FLAMON [Suspect]
     Active Substance: VERAPAMIL HYDROCHLORIDE
     Dosage: 3?0?4
     Route: 048
     Dates: start: 20170201, end: 20180508
  6. ISOPTIN [Suspect]
     Active Substance: VERAPAMIL HYDROCHLORIDE
     Dosage: 1?0?1.5 (600)
     Route: 048
     Dates: start: 20180509, end: 20180512
  7. PANTOZOL [Concomitant]
     Active Substance: PANTOPRAZOLE SODIUM
     Dosage: 1?0?0
     Route: 048
  8. CONDROSULF [Concomitant]
     Active Substance: SODIUM CHONDROITIN SULFATE
     Dosage: 1?0?1
     Route: 048
  9. CYMBALTA [Concomitant]
     Active Substance: DULOXETINE HYDROCHLORIDE
     Dosage: 1?0?1
     Route: 048
  10. SERACTIL [Concomitant]
     Active Substance: DEXIBUPROFEN
     Indication: BONE PAIN
     Dosage: AS NECESSARY
  11. FLAMON [Suspect]
     Active Substance: VERAPAMIL HYDROCHLORIDE
     Dates: start: 201602
  12. CALCIUM?SANDOZ D3 [Concomitant]
     Dosage: 1?0?0?0
     Route: 048
  13. XYLOCAINE [Concomitant]
     Active Substance: LIDOCAINE HYDROCHLORIDE
     Dosage: AS NECESSARY
     Route: 055
  14. ISOPTIN [Suspect]
     Active Substance: VERAPAMIL HYDROCHLORIDE
     Dosage: 1.5?0?1.5
     Route: 048
     Dates: start: 20180514, end: 20180515
  15. TARGIN [Concomitant]
     Active Substance: NALOXONE HYDROCHLORIDE\OXYCODONE HYDROCHLORIDE
     Dosage: 1?0?1

REACTIONS (4)
  - Atrioventricular block complete [Recovered/Resolved]
  - Vomiting [Recovered/Resolved]
  - Off label use [Recovered/Resolved]
  - Prescribed overdose [Recovered/Resolved]

NARRATIVE: CASE EVENT DATE: 20170201
